FAERS Safety Report 9171309 (Version 3)
Quarter: 2014Q1

REPORT INFORMATION
  Report Type: Spontaneous
  Country: US (occurrence: US)
  Receive Date: 20130319
  Receipt Date: 20140310
  Transmission Date: 20141002
  Serious: Yes (Other)
  Sender: FDA-Public Use
  Company Number: US-BAYER-2013-031190

PATIENT
  Age: 29 Year
  Sex: Female
  Weight: 79.37 kg

DRUGS (3)
  1. MIRENA [Suspect]
     Indication: CONTRACEPTION
     Dosage: 20 MCG/24HR, CONT
     Route: 015
     Dates: start: 20100528, end: 201202
  2. FERROUS SULFATE [Concomitant]
  3. METFORMIN HCL [Concomitant]

REACTIONS (10)
  - Uterine perforation [None]
  - Injury [None]
  - Pain [None]
  - Emotional distress [None]
  - Psychological trauma [None]
  - Pregnancy with contraceptive device [None]
  - Depression [None]
  - Anxiety [None]
  - Device dislocation [None]
  - Drug ineffective [None]
